FAERS Safety Report 8272213-2 (Version None)
Quarter: 2012Q2

REPORT INFORMATION
  Report Type: 
  Country: None (occurrence: None)
  Receive Date: 20120410
  Receipt Date: 20120402
  Transmission Date: 20120825
  Serious: Yes (Other)
  Sender: FDA-Public Use
  Company Number: GB-TEVA-331761ISR

PATIENT
  Age: 74 Year
  Sex: Male

DRUGS (1)
  1. DOXORUBICIN HCL [Suspect]
     Indication: HEPATIC NEOPLASM MALIGNANT
     Dosage: TRANSCATHETER ARTERIAL CHEMOEMBOLISATION USING TOTAL OF 75MG DOXORUBICIN BEADS
     Route: 013

REACTIONS (2)
  - DUODENITIS [None]
  - PANCREATITIS NECROTISING [None]
